FAERS Safety Report 14915311 (Version 2)
Quarter: 2018Q2

REPORT INFORMATION
  Report Type: Spontaneous
  Country: DE (occurrence: DE)
  Receive Date: 20180518
  Receipt Date: 20180611
  Transmission Date: 20180711
  Serious: Yes (Hospitalization)
  Sender: FDA-Public Use
  Company Number: PHHY2018DE053800

PATIENT
  Age: 48 Year
  Sex: Female
  Weight: 42 kg

DRUGS (22)
  1. ABRAXANE [Suspect]
     Active Substance: PACLITAXEL
     Indication: NON-SMALL CELL LUNG CANCER
     Dosage: 100 MG/M2, QD
     Route: 041
     Dates: start: 20171208
  2. NYSTADERM [Concomitant]
     Indication: PROPHYLAXIS
     Dosage: 4 DF, QD (1 APPLICATION)
     Route: 048
     Dates: start: 201711, end: 20171214
  3. NOVAMINSULFON [Concomitant]
     Active Substance: METAMIZOLE
     Indication: TUMOUR PAIN
     Dosage: 120 GTT, QD (120 DROPS)
     Route: 048
     Dates: start: 2017
  4. L-THYROXINE [Concomitant]
     Active Substance: LEVOTHYROXINE
     Dosage: 125 UG, QD
     Route: 048
     Dates: start: 20171208
  5. DEXAMETHASONE. [Concomitant]
     Active Substance: DEXAMETHASONE
     Indication: PROPHYLAXIS
     Dosage: 24 MG, QD
     Route: 048
     Dates: start: 20180202
  6. SALBUTAMOL [Concomitant]
     Active Substance: ALBUTEROL
     Indication: CHRONIC OBSTRUCTIVE PULMONARY DISEASE
     Dosage: 1 PUFF
     Route: 055
  7. L-THYROXINE [Concomitant]
     Active Substance: LEVOTHYROXINE
     Indication: THYROIDECTOMY
     Dosage: 100 UG, QD
     Route: 048
     Dates: start: 20171108, end: 20171207
  8. PANTOZOL [Concomitant]
     Active Substance: PANTOPRAZOLE SODIUM
     Indication: PROPHYLAXIS
     Dosage: 40 MG, QD
     Route: 048
  9. VITADRAL [Concomitant]
     Indication: PROPHYLAXIS
     Dosage: 25 GTT, QD (25 DROPS)
     Route: 048
     Dates: start: 201711, end: 20171210
  10. AMOCLAV [Concomitant]
     Active Substance: AMOXICILLIN\CLAVULANATE POTASSIUM
     Indication: PRODUCT USED FOR UNKNOWN INDICATION
     Dosage: 1 DF, Q48H
     Route: 065
     Dates: start: 20180228, end: 20180304
  11. BRIMICA GENUAIR [Concomitant]
     Active Substance: ACLIDINIUM BROMIDE\FORMOTEROL FUMARATE
     Indication: CHRONIC OBSTRUCTIVE PULMONARY DISEASE
     Dosage: 2 DF, QD (1 PUFF)
     Route: 055
     Dates: start: 20171108
  12. VENTOLAIR [Concomitant]
     Active Substance: BECLOMETHASONE DIPROPIONATE
     Indication: PROPHYLAXIS
     Dosage: 2 DF, QD (1 PUFF)
     Route: 055
     Dates: start: 201711
  13. ABRAXANE [Suspect]
     Active Substance: PACLITAXEL
     Dosage: 100 MG/M2, QD
     Route: 041
     Dates: start: 20171215
  14. FRESUBIN [Concomitant]
     Active Substance: AMINO ACIDS\DEXTROSE\ELECTROLYTES NOS\SOYBEAN OIL\VITAMINS
     Indication: CACHEXIA
     Dosage: 2 DF, QD (1 APPLICATION)
     Route: 048
     Dates: start: 20171211
  15. ONDANSETRON [Concomitant]
     Active Substance: ONDANSETRON
     Indication: PROPHYLAXIS
     Dosage: 8 MG, UNK
     Route: 041
  16. DEXAMETHASONE. [Concomitant]
     Active Substance: DEXAMETHASONE
     Dosage: 8 MG, UNK
     Route: 041
     Dates: start: 20171208, end: 20180105
  17. NATRIUM CHLORIDUM [Concomitant]
     Active Substance: SODIUM CHLORIDE
     Indication: PROPHYLAXIS
     Dosage: 100 ML, UNK
     Route: 041
  18. ABRAXANE [Suspect]
     Active Substance: PACLITAXEL
     Dosage: 100 MG/M2, QD
     Route: 041
     Dates: start: 20180105
  19. PANTHENOL [Concomitant]
     Active Substance: PANTHENOL
     Indication: PROPHYLAXIS
     Dosage: 5 DF, QD (ONE TAB)
     Route: 048
     Dates: start: 201711, end: 20171210
  20. PANTHENOL [Concomitant]
     Active Substance: PANTHENOL
     Dosage: 1 TAB
     Route: 048
     Dates: start: 201711, end: 20171210
  21. CARBOPLATIN. [Suspect]
     Active Substance: CARBOPLATIN
     Indication: NON-SMALL CELL LUNG CANCER
     Dosage: 4.8 MG X MIN/ML
     Route: 041
  22. ABRAXANE [Suspect]
     Active Substance: PACLITAXEL
     Dosage: 100 MG/M2, QD
     Route: 041
     Dates: start: 20180112, end: 20180119

REACTIONS (5)
  - Pneumothorax [Recovered/Resolved]
  - Leukopenia [Recovered/Resolved]
  - Leukopenia [Recovered/Resolved]
  - Nausea [Not Recovered/Not Resolved]
  - Anaemia [Recovered/Resolved]

NARRATIVE: CASE EVENT DATE: 20171209
